FAERS Safety Report 7885237 (Version 2)
Quarter: 2019Q1

REPORT INFORMATION
  Report Type: Spontaneous
  Country: GB (occurrence: GB)
  Receive Date: 20110405
  Receipt Date: 20190212
  Transmission Date: 20190418
  Serious: Yes (Other)
  Sender: FDA-Public Use
  Company Number: GB-PFIZER INC-2011072519

PATIENT
  Age: 38 Year
  Sex: Female
  Weight: 93 kg

DRUGS (2)
  1. CHAMPIX [Suspect]
     Active Substance: VARENICLINE TARTRATE
     Indication: SMOKING CESSATION THERAPY
     Dosage: 1 MG, 2X/DAY
     Route: 048
     Dates: start: 20110203, end: 20110313
  2. CERAZETTE [Concomitant]
     Indication: CONTRACEPTION
     Dosage: 75 MG, 1X/DAY
     Route: 048

REACTIONS (3)
  - Headache [Recovering/Resolving]
  - Hypoaesthesia [Recovering/Resolving]
  - Bedridden [Recovering/Resolving]

NARRATIVE: CASE EVENT DATE: 2011
